FAERS Safety Report 9751608 (Version 1)
Quarter: 2013Q4

REPORT INFORMATION
  Report Type: Spontaneous
  Country: US (occurrence: US)
  Receive Date: 20131212
  Receipt Date: 20131212
  Transmission Date: 20140711
  Serious: No
  Sender: FDA-Public Use
  Company Number: US-009507513-1312USA004070

PATIENT
  Age: 57 Year
  Sex: Male

DRUGS (1)
  1. SAPHRIS [Suspect]
     Indication: BIPOLAR DISORDER
     Dosage: 10MG/ TWICE A DAY
     Route: 060
     Dates: start: 201308

REACTIONS (1)
  - Hypoaesthesia oral [Not Recovered/Not Resolved]
